FAERS Safety Report 7655956-0 (Version None)
Quarter: 2011Q3

REPORT INFORMATION
  Report Type: 
  Country: None (occurrence: None)
  Receive Date: 20110804
  Receipt Date: 20110802
  Transmission Date: 20111222
  Serious: Yes (Hospitalization)
  Sender: FDA-Public Use
  Company Number: US-ROXANE LABORATORIES, INC.-2011-RO-01093RO

PATIENT
  Age: 64 Year
  Sex: Female

DRUGS (2)
  1. SERTRALINE HYDROCHLORIDE [Concomitant]
     Dosage: 60 MG
  2. LITHIUM CARBONATE [Suspect]
     Indication: BIPOLAR DISORDER
     Dosage: 600 MG

REACTIONS (1)
  - ATRIOVENTRICULAR BLOCK SECOND DEGREE [None]
